FAERS Safety Report 6368655-2 (Version None)
Quarter: 2009Q3

REPORT INFORMATION
  Report Type: 
  Country: None (occurrence: None)
  Receive Date: 20090922
  Receipt Date: 20090911
  Transmission Date: 20100115
  Serious: Yes (Hospitalization)
  Sender: FDA-Public Use
  Company Number: KR-AVENTIS-200920503GDDC

PATIENT
  Age: 64 Year
  Sex: Female
  Weight: 50 kg

DRUGS (4)
  1. KETEK [Suspect]
     Route: 048
     Dates: start: 20050117, end: 20050118
  2. MUTERIN [Concomitant]
     Route: 048
     Dates: start: 20050117, end: 20050118
  3. NIZATIDINE [Concomitant]
     Route: 048
     Dates: start: 20050117, end: 20050118
  4. RINOEBASTEL [Concomitant]
     Dosage: DOSE QUANTITY: 1
     Route: 048
     Dates: start: 20050117, end: 20050118

REACTIONS (3)
  - BRONCHITIS [None]
  - COUGH [None]
  - MYALGIA [None]
